FAERS Safety Report 9663397 (Version 2)
Quarter: 2013Q4

REPORT INFORMATION
  Report Type: Spontaneous
  Country: US (occurrence: US)
  Receive Date: 20131101
  Receipt Date: 20131101
  Transmission Date: 20140711
  Serious: No
  Sender: FDA-Public Use
  Company Number: US-009507513-1208USA008453

PATIENT
  Sex: Male

DRUGS (2)
  1. PROSCAR [Suspect]
     Dosage: 5 MG, QD
     Route: 048
     Dates: start: 20120529
  2. FLOMAX (MORNIFLUMATE) [Concomitant]

REACTIONS (1)
  - Erectile dysfunction [Not Recovered/Not Resolved]
